FAERS Safety Report 18653756 (Version 7)
Quarter: 2021Q1

REPORT INFORMATION
  Report Type: Spontaneous
  Country: US (occurrence: US)
  Receive Date: 20201223
  Receipt Date: 20210329
  Transmission Date: 20210419
  Serious: Yes (Other)
  Sender: FDA-Public Use
  Company Number: US-BLUEPRINT MEDICINES CORPORATION-SP-US-2020-001364

PATIENT
  Sex: Female

DRUGS (4)
  1. GAVRETO [Suspect]
     Active Substance: PRALSETINIB
     Route: 048
     Dates: start: 20201127
  2. GAVRETO [Suspect]
     Active Substance: PRALSETINIB
     Route: 048
     Dates: start: 20210103
  3. GAVRETO [Suspect]
     Active Substance: PRALSETINIB
     Indication: LUNG NEOPLASM MALIGNANT
     Route: 048
     Dates: start: 20201127, end: 20201229
  4. GAVRETO [Suspect]
     Active Substance: PRALSETINIB
     Route: 048

REACTIONS (6)
  - Feeling abnormal [Unknown]
  - Constipation [Unknown]
  - Hepatic enzyme increased [Recovering/Resolving]
  - Cognitive disorder [Unknown]
  - Blood pressure increased [Unknown]
  - Liver injury [Unknown]
